FAERS Safety Report 12822018 (Version 1)
Quarter: 2016Q4

REPORT INFORMATION
  Report Type: Spontaneous
  Country: US (occurrence: US)
  Receive Date: 20161006
  Receipt Date: 20161006
  Transmission Date: 20170207
  Serious: No
  Sender: FDA-Public Use
  Company Number: US-G+W LABS-GW2016US000147

PATIENT

DRUGS (2)
  1. METRONIDAZOLE. [Suspect]
     Active Substance: METRONIDAZOLE
     Indication: ROSACEA
     Dosage: UNK, BID
     Route: 061
     Dates: start: 20160915, end: 20160925
  2. QVAR [Concomitant]
     Active Substance: BECLOMETHASONE DIPROPIONATE
     Indication: ASTHMA

REACTIONS (3)
  - Dysgeusia [Recovering/Resolving]
  - Oral pain [Recovering/Resolving]
  - Oral mucosal eruption [Recovering/Resolving]

NARRATIVE: CASE EVENT DATE: 201609
